FAERS Safety Report 8010625-2 (Version None)
Quarter: 2011Q4

REPORT INFORMATION
  Report Type: 
  Country: None (occurrence: None)
  Receive Date: 20111228
  Receipt Date: 20111219
  Transmission Date: 20120403
  Serious: Yes (Death, Hospitalization, Disabling, Other)
  Sender: FDA-Public Use
  Company Number: US-PFIZER INC-2011250556

PATIENT

DRUGS (3)
  1. MORPHINE SULFATE [Suspect]
     Dosage: 2 MG, 2X/DAY
     Route: 042
  2. MORPHINE SULFATE [Suspect]
     Dosage: 5 MG, SINGLE
     Route: 042
  3. MORPHINE SULFATE [Suspect]
     Indication: PAIN
     Dosage: 1 MG, Q1H
     Route: 042

REACTIONS (6)
  - SEDATION [None]
  - DELIRIUM [None]
  - DEEP VEIN THROMBOSIS [None]
  - FEMUR FRACTURE [None]
  - PNEUMONIA [None]
  - RENAL FAILURE [None]
